FAERS Safety Report 19129025 (Version 1)
Quarter: 2021Q2

REPORT INFORMATION
  Report Type: Spontaneous
  Country: US (occurrence: US)
  Receive Date: 20210413
  Receipt Date: 20210413
  Transmission Date: 20210717
  Serious: No
  Sender: FDA-Public Use
  Company Number: US-009507513-2104USA002300

PATIENT
  Sex: Male

DRUGS (4)
  1. RALTEGRAVIR POTASSIUM [Suspect]
     Active Substance: RALTEGRAVIR POTASSIUM
     Dosage: 800 (UNITS OT PROVIDED), QD
     Route: 064
  2. LAMIVUDINE AND ZIDOVUDINE [Suspect]
     Active Substance: LAMIVUDINE\ZIDOVUDINE
     Dosage: 2 (UNITS OT PROVIDED), QD
     Route: 064
  3. RITONAVIR. [Suspect]
     Active Substance: RITONAVIR
     Dosage: 100 (UNITS OT PROVIDED), QD
     Route: 064
  4. ATAZANAVIR. [Suspect]
     Active Substance: ATAZANAVIR
     Dosage: 300 (UNITS OT PROVIDED), QD
     Route: 064

REACTIONS (2)
  - Foetal exposure during pregnancy [Recovered/Resolved]
  - Premature baby [Unknown]
